FAERS Safety Report 10133280 (Version 1)
Quarter: 2014Q2

REPORT INFORMATION
  Report Type: Spontaneous
  Country: US (occurrence: US)
  Receive Date: 20140428
  Receipt Date: 20140428
  Transmission Date: 20141212
  Serious: No
  Sender: FDA-Public Use
  Company Number: US-PFIZER INC-2014114864

PATIENT
  Age: 51 Year
  Sex: Female
  Weight: 81.63 kg

DRUGS (9)
  1. LYRICA [Suspect]
     Indication: VULVOVAGINAL PAIN
     Dosage: 200 MG, 3X/DAY
     Route: 048
     Dates: start: 200509
  2. AMITRIPTYLINE [Concomitant]
     Indication: SLEEP DISORDER
     Dosage: 75 MG, 1X/DAY
     Route: 048
  3. CYMBALTA [Concomitant]
     Dosage: 60 MG, 1X/DAY
     Route: 048
  4. HYDROXYZINE [Concomitant]
     Indication: HYPERSENSITIVITY
     Dosage: 25 MG, 3X/DAY
     Route: 048
  5. XANAX [Concomitant]
     Indication: SLEEP DISORDER
     Dosage: UNK, 3X/DAY
     Route: 048
  6. AMBIEN [Concomitant]
     Indication: SLEEP DISORDER
     Dosage: 10 MG, 1X/DAY
     Route: 048
  7. ESTRACE [Concomitant]
     Indication: VULVOVAGINAL PAIN
     Dosage: 2 G, UNK
  8. LASIX [Concomitant]
     Indication: PERIPHERAL SWELLING
     Dosage: 40 MG, 1X/DAY
     Route: 048
  9. UROGESIC BLUE [Concomitant]
     Indication: BLADDER DISORDER
     Dosage: UNK, 3X/DAY
     Route: 048

REACTIONS (2)
  - Feeling abnormal [Unknown]
  - Vulvovaginal pain [Not Recovered/Not Resolved]
